FAERS Safety Report 4992895-8 (Version None)
Quarter: 2006Q1

REPORT INFORMATION
  Report Type: 
  Country: None (occurrence: None)
  Receive Date: 20060315
  Receipt Date: 20060206
  Transmission Date: 20060701
  Serious: No
  Sender: FDA-Public Use
  Company Number: 2006RL000034

PATIENT
  Age: 78 Year
  Sex: Male
  Weight: 82.5547 kg

DRUGS (8)
  1. OMACOR [Suspect]
     Indication: BLOOD CHOLESTEROL
     Dosage: 2 GM;BID;PO
     Route: 048
     Dates: start: 20060101, end: 20060202
  2. VERAPAMIL [Concomitant]
  3. VOLTAREN [Concomitant]
  4. FLOMAX [Concomitant]
  5. NEURONTIN [Concomitant]
  6. ALTACE [Concomitant]
  7. WELCHOL [Concomitant]
  8. PROTONIX [Concomitant]

REACTIONS (5)
  - ARTHRALGIA [None]
  - BACK PAIN [None]
  - PAIN [None]
  - PAIN IN EXTREMITY [None]
  - RASH [None]
